FAERS Safety Report 6611972-9 (Version None)
Quarter: 2010Q1

REPORT INFORMATION
  Report Type: 
  Country: None (occurrence: None)
  Receive Date: 20100302
  Receipt Date: 20100302
  Transmission Date: 20100710
  Serious: Yes (Hospitalization)
  Sender: FDA-Public Use
  Company Number: None

PATIENT
  Sex: Female
  Weight: 57.9 kg

DRUGS (12)
  1. CISPLATIN [Suspect]
     Dosage: 121 MG
  2. TAXOL [Suspect]
     Dosage: 217 MG
  3. ASPIRIN [Concomitant]
  4. CALTRATE [Concomitant]
  5. CARTIA XT [Concomitant]
  6. DIGOXIN [Concomitant]
  7. FASAMAX [Concomitant]
  8. LASIX [Concomitant]
  9. PREVACID [Concomitant]
  10. QUINAPRIL [Concomitant]
  11. SINGULAIR [Concomitant]
  12. WARFARIN SODIUM [Concomitant]

REACTIONS (6)
  - BLOOD BILIRUBIN INCREASED [None]
  - ERYTHEMA [None]
  - INTERNATIONAL NORMALISED RATIO INCREASED [None]
  - OEDEMA PERIPHERAL [None]
  - PNEUMONIA [None]
  - VOMITING [None]
